FAERS Safety Report 8165513-8 (Version None)
Quarter: 2012Q1

REPORT INFORMATION
  Report Type: 
  Country: None (occurrence: None)
  Receive Date: 20120227
  Receipt Date: 20120217
  Transmission Date: 20120608
  Serious: No
  Sender: FDA-Public Use
  Company Number: US-BAYER-2012-016717

PATIENT
  Age: 57 Year
  Sex: Male

DRUGS (2)
  1. LEVITRA [Suspect]
     Dosage: 20 MG, OW
     Route: 048
     Dates: end: 20120211
  2. LEVITRA [Suspect]
     Indication: ERECTILE DYSFUNCTION
     Dosage: UNK
     Dates: start: 20110101

REACTIONS (1)
  - NO ADVERSE EVENT [None]
